FAERS Safety Report 12221012 (Version 1)
Quarter: 2016Q1

REPORT INFORMATION
  Report Type: Spontaneous
  Country: GB (occurrence: GB)
  Receive Date: 20160330
  Receipt Date: 20160330
  Transmission Date: 20160526
  Serious: Yes (Other)
  Sender: FDA-Public Use
  Company Number: GB-WATSON-2016-06776

PATIENT
  Age: 67 Year
  Sex: Female

DRUGS (2)
  1. OLANZAPINE (UNKNOWN) [Suspect]
     Active Substance: OLANZAPINE
     Indication: PRODUCT USED FOR UNKNOWN INDICATION
     Dosage: 10 MG, QPM (TO BE TAKEN AT NIGHT)
     Route: 065
  2. MIRTAZAPINE (UNKNOWN) [Suspect]
     Active Substance: MIRTAZAPINE
     Indication: PRODUCT USED FOR UNKNOWN INDICATION
     Dosage: 30 MG, DAILY (STATED DOSE ON MEDICATION BOX WAS 45MG)
     Route: 065

REACTIONS (5)
  - Somnolence [Unknown]
  - Decreased appetite [Unknown]
  - Inappropriate schedule of drug administration [Unknown]
  - Accidental overdose [Unknown]
  - Incontinence [Unknown]

NARRATIVE: CASE EVENT DATE: 20160113
